APPROVED DRUG PRODUCT: FENTANYL CITRATE PRESERVATIVE FREE
Active Ingredient: FENTANYL CITRATE
Strength: EQ 0.05MG BASE/ML
Dosage Form/Route: INJECTABLE;INJECTION
Application: A072786 | Product #001
Applicant: HOSPIRA INC
Approved: Sep 24, 1991 | RLD: No | RS: No | Type: DISCN